FAERS Safety Report 14680612 (Version 1)
Quarter: 2018Q1

REPORT INFORMATION
  Report Type: Spontaneous
  Country: CH (occurrence: CH)
  Receive Date: 20180326
  Receipt Date: 20180326
  Transmission Date: 20180509
  Serious: Yes (Other)
  Sender: FDA-Public Use
  Company Number: CH-GILEAD-2017-0311111

PATIENT
  Age: 48 Year
  Sex: Male
  Weight: 68 kg

DRUGS (9)
  1. 3TC COMPLEX [Concomitant]
     Active Substance: LAMIVUDINE\ZIDOVUDINE
     Indication: HIV INFECTION
     Dosage: 300
     Route: 048
     Dates: start: 20141001
  2. TEMESTA                            /00273201/ [Concomitant]
     Active Substance: LORAZEPAM
     Dosage: 5 MG, QD
  3. DORMICUM                           /00036201/ [Concomitant]
     Active Substance: NITRAZEPAM
     Dosage: 30
     Route: 048
  4. METHADONE [Concomitant]
     Active Substance: METHADONE HYDROCHLORIDE
     Dosage: 15 MG, UNK
     Route: 048
  5. DOLUTEGRAVIR [Concomitant]
     Active Substance: DOLUTEGRAVIR
     Indication: HIV INFECTION
     Dosage: 50
     Route: 048
     Dates: start: 20141001
  6. MST                                /00021210/ [Concomitant]
     Dosage: 30 MG, TID
  7. HARVONI [Suspect]
     Active Substance: LEDIPASVIR\SOFOSBUVIR
     Indication: CHRONIC HEPATITIS C
     Dosage: UNK
     Route: 065
     Dates: start: 201612, end: 2017
  8. ABACAVIR                           /01401602/ [Concomitant]
     Active Substance: ABACAVIR SULFATE
     Indication: HIV INFECTION
     Dosage: 300
     Route: 048
     Dates: start: 20141001
  9. DEPAKIN CHRONO                     /00228502/ [Concomitant]
     Active Substance: VALPROATE SODIUM
     Dosage: 500 UNK, BID
     Route: 048

REACTIONS (4)
  - Genotype drug resistance test positive [Unknown]
  - Treatment failure [Unknown]
  - Intentional dose omission [Recovered/Resolved]
  - Off label use [Unknown]

NARRATIVE: CASE EVENT DATE: 201612
